FAERS Safety Report 15516349 (Version 1)
Quarter: 2018Q4

REPORT INFORMATION
  Report Type: Other
  Country: NO (occurrence: NO)
  Receive Date: 20181017
  Receipt Date: 20181017
  Transmission Date: 20190205
  Serious: Yes (Life-Threatening, Hospitalization, Disabling)
  Sender: FDA-Public Use
  Company Number: NO-CELLTRION INC.-2018NO023121

PATIENT

DRUGS (1)
  1. REMSIMA [Suspect]
     Active Substance: INFLIXIMAB
     Indication: ANKYLOSING SPONDYLITIS
     Dosage: INFUSION
     Dates: start: 20171117, end: 20171117

REACTIONS (9)
  - Autoimmune hepatitis [Recovered/Resolved with Sequelae]
  - Hyperglycaemia [Unknown]
  - Vision blurred [Unknown]
  - Feeling hot [Unknown]
  - Abnormal sensation in eye [Unknown]
  - Yellow skin [Unknown]
  - Fatigue [Unknown]
  - Asthenia [Unknown]
  - Diabetes mellitus [Recovered/Resolved with Sequelae]

NARRATIVE: CASE EVENT DATE: 20171117
